FAERS Safety Report 6432552-4 (Version None)
Quarter: 2009Q4

REPORT INFORMATION
  Report Type: 
  Country: None (occurrence: None)
  Receive Date: 20091105
  Receipt Date: 20091022
  Transmission Date: 20100525
  Serious: Yes (Other)
  Sender: FDA-Public Use
  Company Number: 2009AP004278

PATIENT
  Sex: Female

DRUGS (2)
  1. LAMOTRIGINE [Suspect]
     Dosage: 400 MG;QD ; 300 MG;QD
  2. TEGRETOL [Suspect]
     Dosage: 800 MG;QD ; 1000 MG;QD ; 400 MG;QD

REACTIONS (15)
  - ANXIETY [None]
  - BACK PAIN [None]
  - CONFUSIONAL STATE [None]
  - CONVULSION [None]
  - DRUG INTERACTION [None]
  - DYSPNOEA [None]
  - EXCESSIVE EYE BLINKING [None]
  - FEELING ABNORMAL [None]
  - HOT FLUSH [None]
  - HYPERHIDROSIS [None]
  - INFECTION [None]
  - MEMORY IMPAIRMENT [None]
  - PANIC ATTACK [None]
  - SPEECH DISORDER [None]
  - TREMOR [None]
